FAERS Safety Report 8984993 (Version 1)
Quarter: 2012Q4

REPORT INFORMATION
  Report Type: Report from Study
  Country: KR (occurrence: KR)
  Receive Date: 20121226
  Receipt Date: 20121226
  Transmission Date: 20130627
  Serious: Yes (Hospitalization)
  Sender: FDA-Public Use
  Company Number: KR-PFIZER INC-2008070946

PATIENT
  Age: 44 Year
  Sex: Female
  Weight: 55 kg

DRUGS (10)
  1. PREGABALIN [Suspect]
     Dosage: 75 mg/day
     Route: 048
     Dates: start: 20080807, end: 20080807
  2. PREGABALIN [Suspect]
     Dosage: 150 mg/day
     Route: 048
     Dates: start: 20080808, end: 20080808
  3. PREGABALIN [Suspect]
     Dosage: 75 mg/day
     Route: 048
     Dates: start: 20080809, end: 20080809
  4. PREGABALIN [Suspect]
     Dosage: 150 mg/day
     Route: 048
     Dates: start: 20080810, end: 20080810
  5. PREGABALIN [Suspect]
     Dosage: 225 mg/day
     Route: 048
     Dates: start: 20080811, end: 20080811
  6. PREGABALIN [Suspect]
     Dosage: 300 mg/day
     Route: 048
     Dates: start: 20080812, end: 20080817
  7. PREGABALIN [Suspect]
     Dosage: 150 mg/day
     Route: 048
     Dates: start: 20080818, end: 20080818
  8. PREGABALIN [Suspect]
     Dosage: 0 mg/day
     Route: 048
     Dates: start: 20080819
  9. LAMOTRIGINE [Concomitant]
     Route: 048
     Dates: start: 20070723
  10. VALPROATE SODIUM [Concomitant]
     Dosage: 450 mg, 2x/day
     Route: 048
     Dates: start: 20080514

REACTIONS (1)
  - Convulsion [Recovered/Resolved]
